FAERS Safety Report 15925119 (Version 2)
Quarter: 2019Q1

REPORT INFORMATION
  Report Type: Spontaneous
  Country: US (occurrence: US)
  Receive Date: 20190205
  Receipt Date: 20190219
  Transmission Date: 20190417
  Serious: No
  Sender: FDA-Public Use
  Company Number: US-ALLERGAN-1841117US

PATIENT
  Age: 75 Year
  Sex: Male

DRUGS (1)
  1. BOTOX [Suspect]
     Active Substance: ONABOTULINUMTOXINA
     Indication: TREMOR
     Dosage: 100 UNITS, SINGLE
     Route: 030
     Dates: start: 201808, end: 201808

REACTIONS (3)
  - Off label use [Unknown]
  - Urticaria [Not Recovered/Not Resolved]
  - Limb immobilisation [Not Recovered/Not Resolved]

NARRATIVE: CASE EVENT DATE: 201808
